FAERS Safety Report 7585089-3 (Version None)
Quarter: 2011Q3

REPORT INFORMATION
  Report Type: 
  Country: None (occurrence: None)
  Receive Date: 20110701
  Receipt Date: 20110621
  Transmission Date: 20111222
  Serious: Yes (Other)
  Sender: FDA-Public Use
  Company Number: AU-AMGEN-AUSSP2011032244

PATIENT
  Age: 42 Year
  Sex: Male
  Weight: 109 kg

DRUGS (1)
  1. ARANESP [Suspect]
     Indication: PRODUCT USED FOR UNKNOWN INDICATION
     Dosage: 20 A?G, UNK
     Dates: start: 20110423, end: 20110423

REACTIONS (3)
  - RECTAL HAEMORRHAGE [None]
  - SWELLING [None]
  - ERYTHEMA [None]
